FAERS Safety Report 4348567-6 (Version None)
Quarter: 2004Q2

REPORT INFORMATION
  Report Type: 
  Country: None (occurrence: None)
  Receive Date: 20040422
  Receipt Date: 20040408
  Transmission Date: 20050107
  Serious: Yes (Death, Hospitalization, Other)
  Sender: FDA-Public Use
  Company Number: GBS040414697

PATIENT
  Age: 42 Year
  Sex: Male

DRUGS (1)
  1. ZYPREXA [Suspect]
     Indication: SCHIZOPHRENIA
     Dosage: 15 MG DAY

REACTIONS (5)
  - BLOOD ALCOHOL INCREASED [None]
  - CARDIAC DISORDER [None]
  - CIRCULATORY COLLAPSE [None]
  - DRUG LEVEL INCREASED [None]
  - DRUG TOXICITY [None]
